FAERS Safety Report 16948975 (Version 1)
Quarter: 2019Q4

REPORT INFORMATION
  Report Type: Spontaneous
  Country: BR (occurrence: BR)
  Receive Date: 20191023
  Receipt Date: 20191023
  Transmission Date: 20200122
  Serious: Yes (Other)
  Sender: FDA-Public Use
  Company Number: NVSC2019BR011361

PATIENT
  Sex: Female

DRUGS (2)
  1. TRAVATAN [Suspect]
     Active Substance: TRAVOPROST
     Indication: PRODUCT USED FOR UNKNOWN INDICATION
     Dosage: STARTED 12 YEARS AGO AND STOPPED 10 YEARS AGO
     Route: 065
  2. DUO TRAVATAN [Suspect]
     Active Substance: TIMOLOL MALEATE\TRAVOPROST
     Indication: PRODUCT USED FOR UNKNOWN INDICATION
     Dosage: STARTED 10 YEARS AGO AND STOPPED 8 DAYS AGO
     Route: 065

REACTIONS (2)
  - Glaucoma [Unknown]
  - Product dose omission [Not Recovered/Not Resolved]
